FAERS Safety Report 6635962-5 (Version None)
Quarter: 2010Q1

REPORT INFORMATION
  Report Type: 
  Country: None (occurrence: None)
  Receive Date: 20100316
  Receipt Date: 20100310
  Transmission Date: 20100710
  Serious: Yes (Life-Threatening, Hospitalization)
  Sender: FDA-Public Use
  Company Number: FR-BRISTOL-MYERS SQUIBB COMPANY-15013303

PATIENT
  Age: 96 Year
  Sex: Female

DRUGS (1)
  1. COUMADIN [Suspect]
     Indication: ATRIAL FIBRILLATION
     Dosage: 1 DF = 1.5 UNIT NOS

REACTIONS (6)
  - ABDOMINAL PAIN [None]
  - ANAEMIA [None]
  - FALL [None]
  - INTRA-ABDOMINAL HAEMATOMA [None]
  - RENAL FAILURE [None]
  - RHABDOMYOLYSIS [None]
